FAERS Safety Report 6480214-X (Version None)
Quarter: 2009Q4

REPORT INFORMATION
  Report Type: 
  Country: None (occurrence: None)
  Receive Date: 20091208
  Receipt Date: 20091204
  Transmission Date: 20100525
  Serious: Yes (Hospitalization)
  Sender: FDA-Public Use
  Company Number: GXKR2009DE13107

PATIENT
  Age: 81 Year
  Sex: Male
  Weight: 74 kg

DRUGS (10)
  1. HCT HEXAL (NGX) [Suspect]
     Dosage: UNK
     Route: 048
     Dates: start: 20090401
  2. QUILONUM - SLOW RELEASE [Interacting]
     Dosage: UNK
     Route: 048
     Dates: start: 19970101, end: 20090413
  3. SOLIAN [Interacting]
     Dosage: 200 MG DAILY
     Route: 048
     Dates: start: 20090330
  4. SOLIAN [Interacting]
     Dosage: 400 MG DAILY
     Route: 048
     Dates: start: 20090331, end: 20090407
  5. SOLIAN [Interacting]
     Dosage: 200 MG,DAILY
     Route: 048
     Dates: start: 20090408, end: 20090410
  6. ALFUZOSIN HCL [Concomitant]
     Route: 048
  7. THEOPHYLLINE [Concomitant]
     Route: 048
  8. SIOFOR [Concomitant]
     Route: 048
  9. TAMSULOSIN [Concomitant]
     Route: 048
  10. TAVOR (FLUCONAZOLE) [Concomitant]
     Route: 048

REACTIONS (2)
  - DRUG INTERACTION [None]
  - PARKINSONISM [None]
